FAERS Safety Report 9738477 (Version 2)
Quarter: 2014Q1

REPORT INFORMATION
  Report Type: Report from Study
  Country: US (occurrence: US)
  Receive Date: 20131208
  Receipt Date: 20140319
  Transmission Date: 20141002
  Serious: Yes (Other)
  Sender: FDA-Public Use
  Company Number: US-ROCHE-1315353

PATIENT
  Age: 80 Year
  Sex: Female

DRUGS (5)
  1. HERCEPTIN [Suspect]
     Indication: BREAST CANCER METASTATIC
     Dosage: 1L
     Route: 065
  2. HERCEPTIN [Suspect]
     Dosage: 2L
     Route: 065
  3. KADCYLA [Suspect]
     Indication: BREAST CANCER METASTATIC
     Dosage: 4L DOSE (KADCYLA) 3.6 MG/KG Q 2 WEEKS
     Route: 065
  4. AFINITOR [Concomitant]
     Route: 065
  5. TYKERB [Concomitant]
     Route: 065

REACTIONS (1)
  - Febrile neutropenia [Unknown]
